FAERS Safety Report 15486611 (Version 1)
Quarter: 2018Q4

REPORT INFORMATION
  Report Type: Spontaneous
  Country: NL (occurrence: NL)
  Receive Date: 20181011
  Receipt Date: 20181011
  Transmission Date: 20190205
  Serious: Yes (Hospitalization)
  Sender: FDA-Public Use
  Company Number: NL-TEVA-2018-NL-963397

PATIENT
  Age: 59 Year
  Weight: 83 kg

DRUGS (1)
  1. DEXAMETHASON [Suspect]
     Active Substance: DEXAMETHASONE
     Indication: SUBDURAL HAEMATOMA
     Route: 065

REACTIONS (5)
  - Hypertension [Recovered/Resolved]
  - Weight increased [Recovered/Resolved]
  - Pruritus generalised [Recovered/Resolved]
  - Skin atrophy [Recovered/Resolved]
  - Mania [Recovered/Resolved]

NARRATIVE: CASE EVENT DATE: 2015
